FAERS Safety Report 11925332 (Version 3)
Quarter: 2016Q1

REPORT INFORMATION
  Report Type: Spontaneous
  Country: US (occurrence: US)
  Receive Date: 20160118
  Receipt Date: 20160304
  Transmission Date: 20160526
  Serious: Yes (Hospitalization)
  Sender: FDA-Public Use
  Company Number: US-BAUSCH-BL-2016-001283

PATIENT
  Sex: Male
  Weight: 74.46 kg

DRUGS (5)
  1. XIFAXAN [Suspect]
     Active Substance: RIFAXIMIN
     Indication: HEPATIC CIRRHOSIS
     Route: 048
     Dates: start: 201504
  2. XIFAXAN [Suspect]
     Active Substance: RIFAXIMIN
     Indication: ASCITES
  3. LACTULOSE. [Concomitant]
     Active Substance: LACTULOSE
     Indication: PRODUCT USED FOR UNKNOWN INDICATION
  4. MULTIVITAMIN [Concomitant]
     Active Substance: VITAMINS
     Indication: PRODUCT USED FOR UNKNOWN INDICATION
  5. FOLIC ACID. [Concomitant]
     Active Substance: FOLIC ACID
     Indication: PRODUCT USED FOR UNKNOWN INDICATION

REACTIONS (3)
  - Hernia repair [Unknown]
  - Ascites [Unknown]
  - Condition aggravated [Unknown]

NARRATIVE: CASE EVENT DATE: 201511
